FAERS Safety Report 10454444 (Version 1)
Quarter: 2014Q3

REPORT INFORMATION
  Report Type: Spontaneous
  Country: US (occurrence: US)
  Receive Date: 20140915
  Receipt Date: 20140915
  Transmission Date: 20150326
  Serious: Yes (Disabling, Other)
  Sender: FDA-Public Use
  Company Number: US-PFIZER INC-2014252448

PATIENT
  Sex: Male

DRUGS (2)
  1. LIPITOR [Suspect]
     Active Substance: ATORVASTATIN CALCIUM
     Indication: MYOCARDIAL INFARCTION
     Dosage: 80 MG, UNK
     Dates: start: 200701
  2. LIPITOR [Suspect]
     Active Substance: ATORVASTATIN CALCIUM
     Dosage: 40 MG, UNK
     Dates: end: 20120131

REACTIONS (28)
  - Coordination abnormal [Unknown]
  - Impaired healing [Unknown]
  - Asthenia [Unknown]
  - Constipation [Unknown]
  - Arthralgia [Unknown]
  - Insomnia [Unknown]
  - Myopathy [Unknown]
  - Sensory loss [Unknown]
  - Peripheral swelling [Unknown]
  - Decreased appetite [Unknown]
  - Wheelchair user [Unknown]
  - Grip strength decreased [Unknown]
  - Transient global amnesia [Unknown]
  - Neuropathy peripheral [Unknown]
  - Ear pain [Unknown]
  - Proctalgia [Unknown]
  - Sinus congestion [Unknown]
  - Groin pain [Unknown]
  - Cataract [Unknown]
  - Interstitial lung disease [Unknown]
  - Muscle atrophy [Unknown]
  - Feeling cold [Unknown]
  - Hepatic enzyme increased [Unknown]
  - Thyroid disorder [Unknown]
  - Balance disorder [Unknown]
  - Myalgia [Unknown]
  - Erectile dysfunction [Unknown]
  - Pain in extremity [Unknown]
